FAERS Safety Report 12331739 (Version 2)
Quarter: 2016Q2

REPORT INFORMATION
  Report Type: Spontaneous
  Country: US (occurrence: US)
  Receive Date: 20160504
  Receipt Date: 20160617
  Transmission Date: 20160815
  Serious: Yes (Hospitalization)
  Sender: FDA-Public Use
  Company Number: US-MEDA-2016040125

PATIENT
  Sex: Male
  Weight: 78 kg

DRUGS (7)
  1. KEPPRA [Concomitant]
     Active Substance: LEVETIRACETAM
     Indication: SEIZURE
     Dosage: 3 TABLETS IN THE MORNING AND EVENING AND 2 TABLETS IN THE AFTERNOON
     Route: 048
  2. FELBATOL [Suspect]
     Active Substance: FELBAMATE
     Indication: GENERALISED TONIC-CLONIC SEIZURE
     Route: 048
     Dates: start: 1995
  3. PHENOBARBITAL. [Concomitant]
     Active Substance: PHENOBARBITAL
     Indication: SEIZURE
     Route: 048
  4. FELBATOL [Suspect]
     Active Substance: FELBAMATE
     Indication: TEMPORAL LOBE EPILEPSY
     Route: 048
     Dates: start: 1995
  5. FELBAMATE. [Suspect]
     Active Substance: FELBAMATE
     Indication: EPILEPSY
     Route: 048
  6. FELBATOL [Suspect]
     Active Substance: FELBAMATE
     Indication: GENERALISED TONIC-CLONIC SEIZURE
     Route: 048
  7. FELBATOL [Suspect]
     Active Substance: FELBAMATE
     Indication: TEMPORAL LOBE EPILEPSY
     Route: 048

REACTIONS (2)
  - Off label use [Not Recovered/Not Resolved]
  - Status epilepticus [Recovered/Resolved]

NARRATIVE: CASE EVENT DATE: 1995
